FAERS Safety Report 8308956-1 (Version None)
Quarter: 2012Q1

REPORT INFORMATION
  Report Type: 
  Country: None (occurrence: None)
  Receive Date: 20120327
  Receipt Date: 20110218
  Transmission Date: 20120608
  Serious: Yes (Other)
  Sender: FDA-Public Use
  Company Number: PHHY2011US14161

PATIENT
  Age: 62 Year
  Sex: Male
  Weight: 81.7 kg

DRUGS (1)
  1. GLEEVEC [Suspect]
     Indication: ACUTE LYMPHOCYTIC LEUKAEMIA
     Dosage: 400 MG, DAILY, ORAL
     Route: 048
     Dates: start: 20101108

REACTIONS (2)
  - RETINAL HAEMORRHAGE [None]
  - EYE DISCHARGE [None]
